FAERS Safety Report 13366964 (Version 13)
Quarter: 2020Q2

REPORT INFORMATION
  Report Type: Report from Study
  Country: US (occurrence: US)
  Receive Date: 20170324
  Receipt Date: 20200518
  Transmission Date: 20200713
  Serious: Yes (Other)
  Sender: FDA-Public Use
  Company Number: PHHY2017US044027

PATIENT
  Age: 38 Year
  Sex: Male

DRUGS (1)
  1. GILENYA [Suspect]
     Active Substance: FINGOLIMOD HYDROCHLORIDE
     Indication: MULTIPLE SCLEROSIS
     Dosage: UNK UNK, QD
     Route: 048

REACTIONS (26)
  - Bradycardia [Recovered/Resolved]
  - Lymphocyte count decreased [Unknown]
  - Muscle spasms [Unknown]
  - Diarrhoea [Not Recovered/Not Resolved]
  - Pollakiuria [Not Recovered/Not Resolved]
  - Fall [Recovered/Resolved]
  - Vision blurred [Unknown]
  - Musculoskeletal stiffness [Unknown]
  - Dizziness postural [Unknown]
  - Irregular sleep phase [Unknown]
  - Depression [Not Recovered/Not Resolved]
  - Chest pain [Unknown]
  - White blood cell count decreased [Unknown]
  - Dry eye [Unknown]
  - Balance disorder [Unknown]
  - Coordination abnormal [Unknown]
  - Tinnitus [Unknown]
  - Headache [Recovered/Resolved]
  - Angina pectoris [Recovered/Resolved]
  - Headache [Unknown]
  - Nausea [Unknown]
  - Anxiety [Unknown]
  - Gait disturbance [Not Recovered/Not Resolved]
  - Epigastric discomfort [Recovered/Resolved]
  - Alanine aminotransferase increased [Unknown]
  - Fatigue [Not Recovered/Not Resolved]

NARRATIVE: CASE EVENT DATE: 20170208
